FAERS Safety Report 22277189 (Version 2)
Quarter: 2023Q2

REPORT INFORMATION
  Report Type: Report from Study
  Country: CA (occurrence: CA)
  Receive Date: 20230503
  Receipt Date: 20230526
  Transmission Date: 20230721
  Serious: Yes (Other)
  Sender: FDA-Public Use
  Company Number: CA-JNJFOC-20230165198

PATIENT
  Age: 16 Year
  Sex: Male
  Weight: 60 kg

DRUGS (1)
  1. REMICADE [Suspect]
     Active Substance: INFLIXIMAB
     Indication: Colitis ulcerative
     Dosage: ON 30-JAN-2023, RECEIVED 57TH 700 MG INFLIXIMAB INFUSION AND PARTIAL MAYO SURVEY WAS COMPLETED. ON 2
     Route: 041
     Dates: start: 20180315

REACTIONS (5)
  - Haematochezia [Recovered/Resolved]
  - General physical health deterioration [Recovering/Resolving]
  - Fatigue [Unknown]
  - Frequent bowel movements [Recovering/Resolving]
  - Off label use [Unknown]

NARRATIVE: CASE EVENT DATE: 20230129
